FAERS Safety Report 5163333-X (Version None)
Quarter: 2006Q4

REPORT INFORMATION
  Report Type: 
  Country: None (occurrence: None)
  Receive Date: 20061124
  Receipt Date: 20061108
  Transmission Date: 20070319
  Serious: Yes (Other)
  Sender: FDA-Public Use
  Company Number: US-2005-010662

PATIENT
  Age: 51 Year
  Sex: Female
  Weight: 87.1 kg

DRUGS (14)
  1. BETASERON [Suspect]
     Indication: RELAPSING-REMITTING MULTIPLE SCLEROSIS
     Dosage: SEE IMAGE
     Route: 058
     Dates: start: 20010409, end: 20050713
  2. BETASERON [Suspect]
     Indication: RELAPSING-REMITTING MULTIPLE SCLEROSIS
     Dosage: SEE IMAGE
     Route: 058
     Dates: start: 20010409, end: 20050815
  3. BETASERON [Suspect]
     Indication: RELAPSING-REMITTING MULTIPLE SCLEROSIS
     Dosage: SEE IMAGE
     Route: 058
     Dates: start: 20050921, end: 20060712
  4. BETASERON [Suspect]
     Indication: RELAPSING-REMITTING MULTIPLE SCLEROSIS
     Dosage: SEE IMAGE
     Route: 058
     Dates: start: 20060721
  5. COPAXONE [Suspect]
     Dates: start: 20050815, end: 20050921
  6. GLEEVEC [Suspect]
     Dosage: 400 MG, 1X/DAY, ORAL
     Route: 048
     Dates: start: 20050601
  7. NEURONTIN [Concomitant]
  8. BACLOFEN [Concomitant]
  9. WELLBUTRIN [Concomitant]
  10. ATIVAN [Concomitant]
  11. PROTONIX [Concomitant]
  12. PROVIGIL [Concomitant]
  13. IBUPROFEN [Concomitant]
  14. ANALGESICS [Concomitant]

REACTIONS (4)
  - CHRONIC MYELOID LEUKAEMIA [None]
  - HYPERSENSITIVITY [None]
  - INJECTION SITE PAIN [None]
  - PAIN IN EXTREMITY [None]
